FAERS Safety Report 4753547-2 (Version None)
Quarter: 2005Q3

REPORT INFORMATION
  Report Type: 
  Country: None (occurrence: None)
  Receive Date: 20050826
  Receipt Date: 20050819
  Transmission Date: 20060218
  Serious: Yes (Life-Threatening, Hospitalization)
  Sender: FDA-Public Use
  Company Number: 2005UW12591

PATIENT
  Age: 48 Year
  Sex: Female

DRUGS (7)
  1. IRESSA [Suspect]
     Indication: OVARIAN CANCER
     Route: 048
     Dates: start: 20050705, end: 20050713
  2. TOPOTECAN [Suspect]
     Indication: OVARIAN CANCER
     Route: 042
     Dates: start: 20050705, end: 20050712
  3. MULTI-VITAMIN [Concomitant]
  4. CALCIUM GLUCONATE [Concomitant]
  5. IRON [Concomitant]
  6. ZOFRAN [Concomitant]
  7. DARVOCET [Concomitant]

REACTIONS (3)
  - ACUTE RESPIRATORY FAILURE [None]
  - HYPOTENSION [None]
  - PULMONARY EMBOLISM [None]
